FAERS Safety Report 8396643-3 (Version None)
Quarter: 2012Q1

REPORT INFORMATION
  Report Type: 
  Country: None (occurrence: None)
  Receive Date: 20120323
  Receipt Date: 20110721
  Transmission Date: 20120608
  Serious: Yes (Other)
  Sender: FDA-Public Use
  Company Number: 163-21880-11040121

PATIENT
  Age: 71 Year
  Sex: Female
  Weight: 73.1198 kg

DRUGS (19)
  1. ECOTRIN (ACETYLSALICYLIC ACID) (ENTERIC-COATED TABLET) [Concomitant]
  2. DEXAMETHASONE [Concomitant]
  3. SYSTANE (RHINARIS) (DROPS) [Concomitant]
  4. MAGIC MOUTHWASH (ALL OTHER THERAPEUTIC PRODUCTS) (UNKNOWN) [Concomitant]
  5. MICONAZOLE NITRATE (MICONAZOLE NITRATE) (SUPPOSITORY) [Concomitant]
  6. SENOKOT (SENNA FRUIT) (TABLETS) [Concomitant]
  7. REVLIMID [Suspect]
     Indication: MULTIPLE MYELOMA
     Dosage: 25 MG, DAILY X 21 DAYS, PO     15 MG, DAILY X 21 DAYS, PO
     Route: 048
     Dates: start: 20101201, end: 20110228
  8. REVLIMID [Suspect]
     Indication: MULTIPLE MYELOMA
     Dosage: 25 MG, DAILY X 21 DAYS, PO     15 MG, DAILY X 21 DAYS, PO
     Route: 048
     Dates: start: 20110404
  9. LEVOTHROID (LEVOTHYROXINE SODIUM) (TABLETS) [Concomitant]
  10. CALCIUM (CALCIUM) (TABLETS) [Concomitant]
  11. RITALIN [Concomitant]
  12. VITAMIN B6 (PYRIDOXINE HYDROCHLORIDE) (TABLETS) [Concomitant]
  13. ATIVAN [Concomitant]
  14. BIOTIN (BIOTIN) (CAPSULE) [Concomitant]
  15. PURALUBE (OINTMENT) [Concomitant]
  16. ZITHROMAX [Concomitant]
  17. ZOMETA [Concomitant]
  18. MULTIVITAMINS (MULTIVITAMINS) (TABLETS) [Concomitant]
  19. ASPIRIN [Concomitant]

REACTIONS (5)
  - THROMBOCYTOPENIA [None]
  - NEUTROPENIA [None]
  - PANCYTOPENIA [None]
  - INSOMNIA [None]
  - UPPER RESPIRATORY TRACT INFECTION [None]
